FAERS Safety Report 17371205 (Version 1)
Quarter: 2020Q1

REPORT INFORMATION
  Report Type: Spontaneous
  Country: US (occurrence: US)
  Receive Date: 20200205
  Receipt Date: 20200205
  Transmission Date: 20200409
  Serious: Yes (Other)
  Sender: FDA-Public Use
  Company Number: US-COOPERSURGICAL, INC.-US-2020CPS000233

PATIENT
  Sex: Female

DRUGS (1)
  1. PARAGARD T 380A [Suspect]
     Active Substance: COPPER
     Indication: PRODUCT USED FOR UNKNOWN INDICATION
     Dosage: UNK
     Route: 015

REACTIONS (8)
  - Sepsis [Unknown]
  - Pregnancy with contraceptive device [Unknown]
  - Uterine perforation [Unknown]
  - Device dislocation [Recovered/Resolved]
  - Intestinal obstruction [Unknown]
  - Embedded device [Recovered/Resolved]
  - Abdominal pain [Unknown]
  - Drug ineffective [Unknown]
